FAERS Safety Report 9235709 (Version 1)
Quarter: 2013Q2

REPORT INFORMATION
  Report Type: Spontaneous
  Country: US (occurrence: None)
  Receive Date: 20130416
  Receipt Date: 20130416
  Transmission Date: 20140414
  Serious: No
  Sender: FDA-Public Use
  Company Number: None

PATIENT
  Age: 63 Year
  Sex: Female
  Weight: 77.11 kg

DRUGS (2)
  1. TROPICAMIDE [Suspect]
     Indication: EYE DISORDER
     Dosage: UNKNOWN DOSE OPHTHALMIC
     Route: 047
     Dates: start: 20130411, end: 20130411
  2. PHENYLEPHRINE  HYDROCHLORIDE [Concomitant]

REACTIONS (2)
  - Vision blurred [None]
  - Eye pain [None]
